FAERS Safety Report 6729027-1 (Version None)
Quarter: 2010Q2

REPORT INFORMATION
  Report Type: 
  Country: None (occurrence: None)
  Receive Date: 20100517
  Receipt Date: 20100326
  Transmission Date: 20101027
  Serious: No
  Sender: FDA-Public Use
  Company Number: US-ABBOTT-10P-163-0635864-00

PATIENT
  Sex: Female
  Weight: 84.898 kg

DRUGS (9)
  1. SIMCOR [Suspect]
     Indication: BLOOD CHOLESTEROL INCREASED
     Dates: start: 20100321, end: 20100324
  2. SIMCOR [Suspect]
     Indication: BLOOD TRIGLYCERIDES INCREASED
  3. MAXZIDE [Concomitant]
     Indication: HYPERTENSION
  4. ATARAX [Concomitant]
     Indication: PRURITUS
  5. PROVERA [Concomitant]
     Indication: HOT FLUSH
  6. ESTRACE [Concomitant]
     Indication: HOT FLUSH
  7. NEXIUM [Concomitant]
     Indication: GASTROOESOPHAGEAL REFLUX DISEASE
  8. TRILIPIX [Concomitant]
     Indication: BLOOD CHOLESTEROL INCREASED
  9. METOPROLOL TARTRATE [Concomitant]
     Indication: HYPERTENSION

REACTIONS (6)
  - DRY SKIN [None]
  - PAIN OF SKIN [None]
  - PARAESTHESIA [None]
  - PERIPHERAL COLDNESS [None]
  - PRURITUS GENERALISED [None]
  - SKIN BURNING SENSATION [None]
